FAERS Safety Report 5383997-5 (Version None)
Quarter: 2007Q3

REPORT INFORMATION
  Report Type: 
  Country: None (occurrence: None)
  Receive Date: 20070711
  Receipt Date: 20070627
  Transmission Date: 20080115
  Serious: Yes (Other)
  Sender: FDA-Public Use
  Company Number: US-SHR-US-2007-024245

PATIENT

DRUGS (1)
  1. BETASERON [Suspect]
     Route: 058

REACTIONS (1)
  - SYSTEMIC LUPUS ERYTHEMATOSUS [None]
